FAERS Safety Report 12548760 (Version 1)
Quarter: 2016Q3

REPORT INFORMATION
  Report Type: Spontaneous
  Country: GB (occurrence: GB)
  Receive Date: 20160712
  Receipt Date: 20160712
  Transmission Date: 20161109
  Serious: Yes (Hospitalization)
  Sender: FDA-Public Use
  Company Number: GB-B. BRAUN MEDICAL INC.-1054918

PATIENT
  Age: 67 Year
  Sex: Male

DRUGS (7)
  1. METRONIDAZOLE. [Suspect]
     Active Substance: METRONIDAZOLE
  2. OMEPRAZOLE. [Suspect]
     Active Substance: OMEPRAZOLE
     Route: 048
  3. EZETIMIBE. [Suspect]
     Active Substance: EZETIMIBE
     Route: 048
  4. INSULIN [Suspect]
     Active Substance: INSULIN NOS
  5. RAMIPRIL. [Suspect]
     Active Substance: RAMIPRIL
  6. ATORVASTATIN [Suspect]
     Active Substance: ATORVASTATIN
  7. CLEXANE [Suspect]
     Active Substance: ENOXAPARIN SODIUM

REACTIONS (1)
  - Acute kidney injury [None]
